FAERS Safety Report 7723950-7 (Version None)
Quarter: 2011Q3

REPORT INFORMATION
  Report Type: 
  Country: None (occurrence: None)
  Receive Date: 20110901
  Receipt Date: 20110819
  Transmission Date: 20111222
  Serious: Yes (Hospitalization, Other)
  Sender: FDA-Public Use
  Company Number: US-ELI_LILLY_AND_COMPANY-US201105004279

PATIENT
  Sex: Female

DRUGS (5)
  1. FISH OIL [Concomitant]
  2. FORTEO [Suspect]
     Indication: OSTEOPOROSIS
     Dosage: 20 UG, QD
     Route: 065
     Dates: start: 20090101, end: 20110716
  3. VITAMIN TAB [Concomitant]
  4. FORTEO [Suspect]
     Dosage: 20 UG, QD
     Route: 065
  5. SPIRIVA [Concomitant]

REACTIONS (11)
  - CHRONIC OBSTRUCTIVE PULMONARY DISEASE [None]
  - CORONARY ARTERY OCCLUSION [None]
  - PRURITUS [None]
  - MALAISE [None]
  - PIGMENTATION DISORDER [None]
  - HYPOPHAGIA [None]
  - HAEMORRHAGE [None]
  - SKIN DISORDER [None]
  - BLOOD PRESSURE INCREASED [None]
  - CHEST PAIN [None]
  - NAUSEA [None]
